FAERS Safety Report 9115779 (Version 1)
Quarter: 2013Q1

REPORT INFORMATION
  Report Type: Spontaneous
  Country: SE (occurrence: SE)
  Receive Date: 20130224
  Receipt Date: 20130224
  Transmission Date: 20140127
  Serious: Yes (Hospitalization)
  Sender: FDA-Public Use
  Company Number: SE-TEVA-386686ISR

PATIENT
  Age: 41 Year
  Sex: Male

DRUGS (2)
  1. DOXYFERM [Suspect]
     Indication: PNEUMONIA
     Route: 048
     Dates: start: 2007, end: 2007
  2. K?VEPENIN [Suspect]
     Indication: ARTHROPOD BITE
     Route: 048
     Dates: start: 2008, end: 2008

REACTIONS (2)
  - Confusional state [Not Recovered/Not Resolved]
  - Malaise [None]
